FAERS Safety Report 9374647 (Version 1)
Quarter: 2013Q2

REPORT INFORMATION
  Report Type: Spontaneous
  Country: GB (occurrence: GB)
  Receive Date: 20130628
  Receipt Date: 20130628
  Transmission Date: 20140414
  Serious: Yes (Hospitalization, Congenital Anomaly)
  Sender: FDA-Public Use
  Company Number: GB-PFIZER INC-2013188373

PATIENT
  Age: 76 Year
  Sex: Male

DRUGS (8)
  1. AMLODIPINE BESILATE [Suspect]
     Indication: HYPERTENSION
     Dosage: 5 MG, UNK
     Route: 048
     Dates: start: 20130606, end: 20130606
  2. DILTIAZEM [Suspect]
     Indication: SUPRAVENTRICULAR TACHYCARDIA
     Dosage: ONE SINGLE DOSE
     Route: 048
     Dates: start: 20130606, end: 20130606
  3. DILTIAZEM [Suspect]
     Indication: HYPERTENSION
  4. RAMIPRIL [Concomitant]
  5. FRUSEMIDE [Concomitant]
  6. BETAHISTINE [Concomitant]
  7. WARFARIN [Concomitant]
  8. SIMVASTATIN [Concomitant]

REACTIONS (3)
  - Hypotension [Recovered/Resolved]
  - Renal failure acute [Recovered/Resolved]
  - Hepatitis [Recovered/Resolved]
